FAERS Safety Report 9203402 (Version 1)
Quarter: 2013Q1

REPORT INFORMATION
  Report Type: Spontaneous
  Country: US (occurrence: None)
  Receive Date: 20120709
  Receipt Date: 20120709
  Transmission Date: 20140127
  Serious: No
  Sender: FDA-Public Use
  Company Number: 2012HGS-003710

PATIENT
  Sex: 0
  Weight: 79.38 kg

DRUGS (5)
  1. BENLYSTA [Suspect]
     Indication: SYSTEMIC LUPUS ERYTHEMATOSUS
     Dosage: 1 IN 28 D, INTRAVENOUS DRIP
     Dates: start: 20120510
  2. PLAQUENIL (HYDROXYCHLOROQUINE PHOSPHATE) (HYDROCHLOROQUINE PHOSPHATE) [Concomitant]
  3. IMURAN (AZATHIOPRINE) [Concomitant]
  4. PREDNISONE (PREDNISONE) (PREDNISONE) [Concomitant]
  5. GRALISE (GABAPENTIN)(GABAPENTIN) [Concomitant]

REACTIONS (7)
  - Dehydration [None]
  - Blood urine present [None]
  - Confusional state [None]
  - Vomiting [None]
  - Nausea [None]
  - Abdominal pain upper [None]
  - Diarrhoea [None]
